FAERS Safety Report 8826173 (Version 2)
Quarter: 2014Q3

REPORT INFORMATION
  Report Type: Report from Study
  Country: US (occurrence: US)
  Receive Date: 20121005
  Receipt Date: 20140822
  Transmission Date: 20150326
  Serious: Yes (Death, Hospitalization, Other)
  Sender: FDA-Public Use
  Company Number: US-ROCHE-1137057

PATIENT
  Age: 71 Year
  Sex: Male

DRUGS (11)
  1. ETOPOSIDE. [Concomitant]
     Active Substance: ETOPOSIDE
  2. CISPLATIN. [Concomitant]
     Active Substance: CISPLATIN
  3. RITUXAN [Suspect]
     Active Substance: RITUXIMAB
     Indication: B-CELL LYMPHOMA
     Route: 042
  4. PREDNISONE. [Concomitant]
     Active Substance: PREDNISONE
  5. ADRIAMYCIN [Concomitant]
     Active Substance: DOXORUBICIN HYDROCHLORIDE
  6. CYTARABINE. [Concomitant]
     Active Substance: CYTARABINE
  7. CYCLOPHOSPHAMIDE. [Concomitant]
     Active Substance: CYCLOPHOSPHAMIDE
  8. RITUXAN [Suspect]
     Active Substance: RITUXIMAB
     Indication: B-CELL LYMPHOMA STAGE III
  9. TYLENOL [Concomitant]
     Active Substance: ACETAMINOPHEN
     Route: 065
     Dates: start: 19990825
  10. VINCRISTINE [Concomitant]
     Active Substance: VINCRISTINE
  11. KYTRIL [Concomitant]
     Active Substance: GRANISETRON HYDROCHLORIDE
     Route: 065
     Dates: start: 19990825

REACTIONS (13)
  - Death [Fatal]
  - Urinary tract infection [Unknown]
  - Abdominal pain [Unknown]
  - Dyspnoea [Unknown]
  - Lymphadenopathy [Unknown]
  - Chest pain [Unknown]
  - Pleural effusion [Unknown]
  - Pyuria [Unknown]
  - Muscular weakness [Unknown]
  - Atelectasis [Unknown]
  - Back pain [Unknown]
  - Disease progression [Unknown]
  - Fatigue [Unknown]

NARRATIVE: CASE EVENT DATE: 20001026
